FAERS Safety Report 16936452 (Version 2)
Quarter: 2020Q2

REPORT INFORMATION
  Report Type: Report from Study
  Country: US (occurrence: US)
  Receive Date: 20191018
  Receipt Date: 20200620
  Transmission Date: 20200713
  Serious: Yes (Hospitalization, Other)
  Sender: FDA-Public Use
  Company Number: US-AMGEN-USASP2019169337

PATIENT
  Age: 65 Year
  Sex: Female

DRUGS (2)
  1. LASIX [Concomitant]
     Active Substance: FUROSEMIDE
  2. PROLIA [Suspect]
     Active Substance: DENOSUMAB
     Indication: OSTEOPOROSIS POSTMENOPAUSAL
     Dosage: UNK
     Route: 065
     Dates: start: 201902

REACTIONS (11)
  - Lymphoedema [Unknown]
  - Osteonecrosis of jaw [Unknown]
  - Pain in extremity [Unknown]
  - Blood potassium decreased [Unknown]
  - Rib fracture [Unknown]
  - Peripheral venous disease [Unknown]
  - Arthralgia [Unknown]
  - Cellulitis [Unknown]
  - Fall [Unknown]
  - Back pain [Unknown]
  - Head injury [Unknown]

NARRATIVE: CASE EVENT DATE: 20190204
